FAERS Safety Report 19860495 (Version 1)
Quarter: 2021Q3

REPORT INFORMATION
  Report Type: Spontaneous
  Country: US (occurrence: US)
  Receive Date: 20210917
  Receipt Date: 20210917
  Transmission Date: 20211014
  Serious: Yes (Death)
  Sender: FDA-Public Use
  Company Number: None

PATIENT
  Age: 78 Year
  Sex: Female
  Weight: 86.1 kg

DRUGS (1)
  1. BREYANZI [Suspect]
     Active Substance: LISOCABTAGENE MARALEUCEL
     Indication: DIFFUSE LARGE B-CELL LYMPHOMA
     Dates: start: 20210817, end: 20210817

REACTIONS (17)
  - Complication associated with device [None]
  - Hypovolaemia [None]
  - Small intestinal obstruction [None]
  - Neutropenia [None]
  - Acid base balance abnormal [None]
  - Diarrhoea [None]
  - Acute kidney injury [None]
  - Disease progression [None]
  - Pyrexia [None]
  - Cytokine release syndrome [None]
  - Malignant gastrointestinal obstruction [None]
  - Renal replacement therapy [None]
  - Continuous haemodiafiltration [None]
  - Hydronephrosis [None]
  - Lymphocyte adoptive therapy [None]
  - Cardio-respiratory arrest [None]
  - Fluid intake reduced [None]

NARRATIVE: CASE EVENT DATE: 20210828
